FAERS Safety Report 9891455 (Version 2)
Quarter: 2017Q1

REPORT INFORMATION
  Report Type: Spontaneous
  Country: CA (occurrence: CA)
  Receive Date: 20140212
  Receipt Date: 20170323
  Transmission Date: 20170429
  Serious: Yes (Other)
  Sender: FDA-Public Use
  Company Number: CA-JNJFOC-20140202594

PATIENT

DRUGS (3)
  1. INFLIXIMAB, RECOMBINANT [Suspect]
     Active Substance: INFLIXIMAB
     Indication: COLITIS ULCERATIVE
     Dosage: WEEKS 0, 2, 6, AND 14 PLUS DAILY ORAL PLACEBO CAPSULES
     Route: 042
  2. PREDNISONE. [Concomitant]
     Active Substance: PREDNISONE
     Dosage: 20 MG/DAY, TAPERED DAILY BY 5 MG/WEEK TO??20 MG/DAY, THEN BY 2.5 MG/WEEK
     Route: 065
  3. AZATHIOPRIN [Suspect]
     Active Substance: AZATHIOPRINE
     Indication: PRODUCT USED FOR UNKNOWN INDICATION
     Route: 065

REACTIONS (15)
  - Anaemia [Unknown]
  - Infection [Unknown]
  - Nausea [Unknown]
  - Dysgeusia [Unknown]
  - Pneumonia [Unknown]
  - Colitis ulcerative [Unknown]
  - Fatigue [Unknown]
  - Drug specific antibody present [Unknown]
  - Abdominal pain [Unknown]
  - Pyrexia [Unknown]
  - Toxic skin eruption [Unknown]
  - Drug ineffective [Unknown]
  - Headache [Unknown]
  - Vomiting [Unknown]
  - Hepatic enzyme abnormal [Unknown]
